FAERS Safety Report 9688568 (Version 2)
Quarter: 2014Q3

REPORT INFORMATION
  Report Type: Spontaneous
  Country: US (occurrence: None)
  Receive Date: 20131112
  Receipt Date: 20140916
  Transmission Date: 20150326
  Serious: Yes (Other)
  Sender: FDA-Public Use
  Company Number: 2013-US-002709

PATIENT
  Age: 45 Year
  Sex: Female
  Weight: 72.6 kg

DRUGS (9)
  1. MULTIVITAMIN (ASCORBIC ACID, BIOTIN, CALCIUM, CHOLINE BITARTRATE, CHROMIUM, COPPER, FOLIC ACID, INOSITIL, IODINEM IRON, MAGNESIUM, MANGANASE, MOLYBDENUM, NICOTINAMIDE, PANTHOTHENIC ACID, PHOSPHORUS, POTASSIUM, PYRIDOXINE, RETINOL, RIBOFLAVIN, SELENIUM, THIAMINE, TOCOPHEROL, VITAMIN B12 NOS, VITAMIN D NOS, ZINC) [Concomitant]
  2. XYREM [Suspect]
     Active Substance: SODIUM OXYBATE
     Indication: NARCOLEPSY
     Route: 048
     Dates: start: 201310, end: 201310
  3. SYNTHROID [Concomitant]
     Active Substance: LEVOTHYROXINE SODIUM
  4. OXYCODONE (OXYCODONE HYDROCHLORIDE) (OXYCODONE) [Concomitant]
     Active Substance: OXYCODONE
  5. XYREM [Suspect]
     Active Substance: SODIUM OXYBATE
     Indication: CATAPLEXY
     Route: 048
     Dates: start: 201310, end: 201310
  6. SAPHRIS [Concomitant]
     Active Substance: ASENAPINE MALEATE
  7. LORAZEPAM (LORAZEPAM) [Concomitant]
     Active Substance: LORAZEPAM
  8. FENTANYL (FENTANYL) [Concomitant]
     Active Substance: FENTANYL
  9. OXYMORPHONE [Concomitant]
     Active Substance: OXYMORPHONE

REACTIONS (6)
  - Abdominal pain upper [None]
  - Restless legs syndrome [None]
  - Insomnia [None]
  - Dyskinesia [None]
  - Dyspepsia [None]
  - Bipolar I disorder [None]

NARRATIVE: CASE EVENT DATE: 201310
